FAERS Safety Report 17162672 (Version 1)
Quarter: 2019Q4

REPORT INFORMATION
  Report Type: Spontaneous
  Country: US (occurrence: US)
  Receive Date: 20191216
  Receipt Date: 20191216
  Transmission Date: 20200122
  Serious: Yes (Disabling)
  Sender: FDA-Public Use
  Company Number: None

PATIENT
  Age: 38 Year
  Sex: Male
  Weight: 67.5 kg

DRUGS (1)
  1. VENLAFAXINE HCL 150MG [Suspect]
     Active Substance: VENLAFAXINE HYDROCHLORIDE
     Indication: DEPRESSION
     Route: 048
     Dates: start: 20190801, end: 20191201

REACTIONS (4)
  - Depression [None]
  - Product substitution issue [None]
  - Sleep disorder [None]
  - Withdrawal syndrome [None]

NARRATIVE: CASE EVENT DATE: 20191216
